FAERS Safety Report 9006985 (Version 2)
Quarter: 2013Q1

REPORT INFORMATION
  Report Type: Spontaneous
  Country: US (occurrence: US)
  Receive Date: 20130110
  Receipt Date: 20130221
  Transmission Date: 20140127
  Serious: Yes (Hospitalization)
  Sender: FDA-Public Use
  Company Number: US-VERTEX PHARMACEUTICALS INC.-2013-000444

PATIENT
  Age: 32 Year
  Sex: Female

DRUGS (10)
  1. AFACORT [Concomitant]
  2. ASPIRIN [Concomitant]
  3. VITAMIN B12 [Concomitant]
  4. ATENOLOL [Concomitant]
  5. IRON [Concomitant]
  6. INCIVEK [Suspect]
     Indication: HEPATITIS C
     Dosage: UNK
     Dates: start: 20120920
  7. RIBAVIRIN [Suspect]
     Indication: HEPATITIS C
     Dosage: UNK
     Dates: start: 20120920
  8. RIBAVIRIN [Suspect]
     Dosage: 600 MG, UNK
  9. PEGINTERFERON [Suspect]
     Indication: HEPATITIS C
     Dosage: UNK
     Dates: start: 20120920
  10. OMEPRAZOLE [Concomitant]

REACTIONS (1)
  - Skin reaction [Unknown]
